FAERS Safety Report 9659888 (Version 2)
Quarter: 2013Q4

REPORT INFORMATION
  Report Type: Spontaneous
  Country: US (occurrence: US)
  Receive Date: 20131031
  Receipt Date: 20131031
  Transmission Date: 20140711
  Serious: Yes (Other)
  Sender: FDA-Public Use
  Company Number: US-SANOFI-AVENTIS-2013SA083527

PATIENT
  Age: 79 Year
  Sex: Female
  Weight: 60.78 kg

DRUGS (20)
  1. TAXOTERE [Suspect]
     Indication: BREAST CANCER
     Route: 065
     Dates: start: 200704
  2. HERCEPTIN [Suspect]
     Route: 065
     Dates: start: 200704
  3. HERCEPTIN [Suspect]
     Route: 065
     Dates: start: 20110127
  4. HERCEPTIN [Suspect]
     Route: 065
  5. TAXOL [Suspect]
     Route: 065
     Dates: start: 200708
  6. CARBOPLATIN [Suspect]
     Dates: start: 200708
  7. AVASTIN [Suspect]
     Dates: start: 200708
  8. ARIMIDEX [Suspect]
  9. NAVELBINE [Suspect]
  10. LAPATINIB [Suspect]
     Dates: end: 20090908
  11. EXEMESTANE [Suspect]
     Dates: start: 20100406
  12. GEMZAR [Suspect]
     Dates: start: 20110127, end: 20111206
  13. CISPLATIN [Suspect]
     Dates: start: 20110127, end: 20111206
  14. YTTRIUM (90 Y) [Suspect]
     Dates: start: 20120201, end: 20120201
  15. CAPECITABINE [Suspect]
     Dosage: 1-14 DAYS GIVEN EVERY 21 DAYS
  16. LAPATINIB [Suspect]
  17. FASLODEX [Suspect]
  18. ERIBULIN MESILATE [Suspect]
  19. AFINITOR [Suspect]
  20. AREDIA [Suspect]
     Dates: end: 20111221

REACTIONS (12)
  - Abdominal hernia [Recovered/Resolved]
  - Abdominal pain [Recovered/Resolved]
  - Neoplasm [Unknown]
  - Metastasis [Unknown]
  - Carbohydrate antigen 15-3 increased [Unknown]
  - Carbohydrate antigen 19-9 increased [Unknown]
  - Cellulitis [Unknown]
  - Oedema peripheral [Unknown]
  - Pain in extremity [Unknown]
  - Feeling hot [Unknown]
  - Epistaxis [Unknown]
  - Neuropathy peripheral [Unknown]
